FAERS Safety Report 7759057-2 (Version None)
Quarter: 2011Q3

REPORT INFORMATION
  Report Type: 
  Country: None (occurrence: None)
  Receive Date: 20110915
  Receipt Date: 20110823
  Transmission Date: 20111222
  Serious: Yes (Other)
  Sender: FDA-Public Use
  Company Number: 2011-2985

PATIENT
  Age: 3 Year
  Sex: Female
  Weight: 13.2 kg

DRUGS (10)
  1. IPRATROPIUM BROMIDE [Concomitant]
  2. INCRELEX [Suspect]
     Indication: GROWTH HORMONE DEFICIENCY
     Dosage: 30 UNITS (15 UNITS, 2 IN 1 D), SUBCUTANEOUS
     Route: 058
     Dates: start: 20110301
  3. PHENOBARBITAL TAB [Concomitant]
  4. ALBUTEROL [Concomitant]
  5. ROBINUL (GLYCOPYRRONIUM BROMIDE) [Concomitant]
  6. MULTIVITAMIN (MULTIVITAMIN /00831701/) [Concomitant]
  7. CALCITRIOL [Concomitant]
  8. RANITIDINE [Concomitant]
  9. QVAR MDI (BECLOMETASONE DIPROPIONATE) [Concomitant]
  10. TOBRAMYCIN [Concomitant]

REACTIONS (3)
  - ALOPECIA [None]
  - CONVULSION [None]
  - CONDITION AGGRAVATED [None]
